FAERS Safety Report 4681072-6 (Version None)
Quarter: 2005Q2

REPORT INFORMATION
  Report Type: 
  Country: None (occurrence: None)
  Receive Date: 20050603
  Receipt Date: 20040909
  Transmission Date: 20051028
  Serious: Yes (Death, Life-Threatening)
  Sender: FDA-Public Use
  Company Number: NZ-GLAXOSMITHKLINE-B0347245A

PATIENT
  Age: 26 Year
  Sex: Male
  Weight: 70 kg

DRUGS (2)
  1. LAMICTAL [Suspect]
     Indication: EPILEPSY
     Dosage: 600MG PER DAY
     Route: 048
     Dates: start: 19950101, end: 20041201
  2. EPILIM [Suspect]
     Indication: EPILEPSY
     Dosage: 1000U PER DAY
     Route: 048
     Dates: end: 20041201

REACTIONS (8)
  - CARDIAC DISORDER [None]
  - CONVULSION [None]
  - DROP ATTACKS [None]
  - GRAND MAL CONVULSION [None]
  - PETIT MAL EPILEPSY [None]
  - SUDDEN DEATH [None]
  - SUDDEN UNEXPLAINED DEATH IN EPILEPSY [None]
  - THROMBOCYTOPENIA [None]
